FAERS Safety Report 21015345 (Version 1)
Quarter: 2022Q3

REPORT INFORMATION
  Report Type: Spontaneous
  Country: CN (occurrence: CN)
  Receive Date: 20220628
  Receipt Date: 20220628
  Transmission Date: 20221026
  Serious: Yes (Other)
  Sender: FDA-Public Use
  Company Number: CN-NOVARTISPH-NVSC2022CN146691

PATIENT
  Age: 58 Year
  Sex: Male
  Weight: 51.5 kg

DRUGS (3)
  1. ELTROMBOPAG OLAMINE [Suspect]
     Active Substance: ELTROMBOPAG OLAMINE
     Indication: Non-Hodgkin^s lymphoma
     Dosage: 50 MG, QD
     Route: 048
     Dates: start: 20220603, end: 20220606
  2. ELTROMBOPAG OLAMINE [Suspect]
     Active Substance: ELTROMBOPAG OLAMINE
     Dosage: 75 MG, QD
     Route: 048
     Dates: start: 20220607
  3. ELTROMBOPAG OLAMINE [Suspect]
     Active Substance: ELTROMBOPAG OLAMINE
     Dosage: 25 MG, QD
     Route: 048
     Dates: start: 20220613

REACTIONS (1)
  - Hepatic enzyme increased [Recovered/Resolved]

NARRATIVE: CASE EVENT DATE: 20220607
